FAERS Safety Report 10012862 (Version 1)
Quarter: 2014Q1

REPORT INFORMATION
  Report Type: Spontaneous
  Country: US (occurrence: US)
  Receive Date: 20140314
  Receipt Date: 20140314
  Transmission Date: 20141002
  Serious: Yes (Other)
  Sender: FDA-Public Use
  Company Number: US-ACTAVIS-2014-04364

PATIENT
  Age: 72 Year
  Sex: Male

DRUGS (3)
  1. CARBIDOPA/LEVODOPA (AELLC) [Suspect]
     Indication: PARKINSON^S DISEASE
     Dosage: 1/2 TABLET EVERY 2 HOURS, MAXIMUM 8 DOSES, EXTRA DOSES TAKEN BY THE PATIENT
     Route: 065
  2. CARBIDOPA/LEVODOPA (AELLC) [Suspect]
     Indication: INTENTIONAL OVERDOSE
  3. AMANTADINE [Concomitant]
     Indication: PARKINSON^S DISEASE
     Dosage: 100 MG, BID
     Route: 065

REACTIONS (2)
  - Dopamine dysregulation syndrome [Recovered/Resolved]
  - Intentional overdose [Recovered/Resolved]
